FAERS Safety Report 23354429 (Version 1)
Quarter: 2024Q1

REPORT INFORMATION
  Report Type: Report from Study
  Country: IT (occurrence: IT)
  Receive Date: 20240101
  Receipt Date: 20240101
  Transmission Date: 20240410
  Serious: Yes (Other)
  Sender: FDA-Public Use
  Company Number: None

PATIENT
  Age: 51 Year
  Sex: Male

DRUGS (3)
  1. IRINOTECAN [Suspect]
     Active Substance: IRINOTECAN
     Indication: Colon neoplasm
     Dosage: 250MG EACH CYCLE OF THERAPY
     Dates: start: 20230712, end: 20231107
  2. BEVACIZUMAB [Suspect]
     Active Substance: BEVACIZUMAB
     Indication: Colon neoplasm
     Dosage: 390 MG EACH CYCLE OF THERAPY
     Dates: start: 20230712, end: 20231107
  3. FLUOROURACIL [Suspect]
     Active Substance: FLUOROURACIL
     Indication: Colon neoplasm
     Dosage: 4500MG EACH CYCLE OF THERAPY
     Dates: start: 20230712, end: 20231107

REACTIONS (9)
  - Paraesthesia [Recovered/Resolved]
  - Hiccups [Recovered/Resolved]
  - Nausea [Recovered/Resolved]
  - Chest pain [Not Recovered/Not Resolved]
  - Decreased appetite [Recovered/Resolved]
  - Epistaxis [Recovering/Resolving]
  - Dysgeusia [Recovering/Resolving]
  - Skin fissures [Recovering/Resolving]
  - Weight decreased [Recovered/Resolved]

NARRATIVE: CASE EVENT DATE: 20230701
